FAERS Safety Report 16411461 (Version 1)
Quarter: 2019Q2

REPORT INFORMATION
  Report Type: Spontaneous
  Country: CA (occurrence: CA)
  Receive Date: 20190610
  Receipt Date: 20190610
  Transmission Date: 20190711
  Serious: Yes (Other)
  Sender: FDA-Public Use
  Company Number: CA-ELI_LILLY_AND_COMPANY-CA201905015798

PATIENT
  Sex: Female

DRUGS (11)
  1. CYMBALTA [Suspect]
     Active Substance: DULOXETINE HYDROCHLORIDE
     Indication: PRODUCT USED FOR UNKNOWN INDICATION
     Dosage: 60 MG, UNKNOWN
     Route: 065
     Dates: start: 2018
  2. GABAPENTIN. [Suspect]
     Active Substance: GABAPENTIN
     Indication: PRODUCT USED FOR UNKNOWN INDICATION
     Dosage: 200 MG, DAILY
     Route: 065
     Dates: start: 2018
  3. MAXERAN [Suspect]
     Active Substance: METOCLOPRAMIDE HYDROCHLORIDE
     Indication: MORNING SICKNESS
     Dosage: UNK, UNKNOWN
     Route: 065
     Dates: start: 2018
  4. DICLECTIN [Suspect]
     Active Substance: DOXYLAMINE SUCCINATE\PYRIDOXINE HYDROCHLORIDE
     Indication: MORNING SICKNESS
     Dosage: UNK, UNKNOWN
     Route: 065
     Dates: start: 2018
  5. PERCOCET [OXYCODONE HYDROCHLORIDE;OXYCODONE T [Suspect]
     Active Substance: ACETAMINOPHEN\OXYCODONE HYDROCHLORIDE\OXYCODONE TEREPHTHALATE
     Indication: PRODUCT USED FOR UNKNOWN INDICATION
     Dosage: 200 DOSAGE FORM, MONTHLY (1/M)
     Route: 065
     Dates: start: 20180606, end: 201806
  6. GRAVOL [Suspect]
     Active Substance: DIMENHYDRINATE
     Indication: MORNING SICKNESS
     Dosage: UNK, UNKNOWN
     Route: 065
     Dates: start: 2018
  7. ZOFRAN [Suspect]
     Active Substance: ONDANSETRON HYDROCHLORIDE
     Indication: MORNING SICKNESS
     Dosage: UNK, UNKNOWN
     Route: 065
     Dates: start: 2018
  8. CANNABIS [Suspect]
     Active Substance: CANNABIS SATIVA SUBSP. INDICA TOP
     Indication: PRODUCT USED FOR UNKNOWN INDICATION
     Dosage: UNK, UNKNOWN
     Route: 065
     Dates: start: 2018
  9. SUBOXONE [Suspect]
     Active Substance: BUPRENORPHINE HYDROCHLORIDE\NALOXONE HYDROCHLORIDE
     Indication: DRUG DEPENDENCE
     Dosage: UNK, UNKNOWN
     Route: 065
     Dates: start: 20180606, end: 20180903
  10. SUBUTEX [Suspect]
     Active Substance: BUPRENORPHINE HYDROCHLORIDE
     Indication: DRUG DEPENDENCE
     Dosage: 16 MG, DAILY
     Route: 065
     Dates: start: 20180904, end: 20190301
  11. LORAZEPAM. [Suspect]
     Active Substance: LORAZEPAM
     Indication: ANXIETY
     Dosage: 1 MG, UNKNOWN
     Route: 065
     Dates: start: 2018

REACTIONS (3)
  - Premature separation of placenta [Unknown]
  - Fall [Unknown]
  - Maternal exposure during pregnancy [Recovered/Resolved]
